FAERS Safety Report 5286232-1 (Version None)
Quarter: 2007Q1

REPORT INFORMATION
  Report Type: 
  Country: None (occurrence: None)
  Receive Date: 20070116
  Receipt Date: 20061204
  Transmission Date: 20070707
  Serious: No
  Sender: FDA-Public Use
  Company Number: 2006SP004259

PATIENT
  Age: 70 Year
  Sex: Male

DRUGS (9)
  1. LUNESTA [Suspect]
     Indication: INSOMNIA
     Dosage: SEE IMAGE
     Route: 048
     Dates: start: 20061101, end: 20061101
  2. LUNESTA [Suspect]
     Indication: INSOMNIA
     Dosage: SEE IMAGE
     Route: 048
     Dates: start: 20061101, end: 20061130
  3. AMBIEN [Concomitant]
  4. ALTACE [Concomitant]
  5. ATENOLOL [Concomitant]
  6. AVODART [Concomitant]
  7. TAMSULOSIN HCL [Concomitant]
  8. ATORVASTATIN CALCIUM [Concomitant]
  9. ASPIRIN [Concomitant]

REACTIONS (1)
  - DYSGEUSIA [None]
